FAERS Safety Report 10266371 (Version 2)
Quarter: 2014Q2

REPORT INFORMATION
  Report Type: Spontaneous
  Country: GB (occurrence: GB)
  Receive Date: 20140628
  Receipt Date: 20140628
  Transmission Date: 20141212
  Serious: Yes (Disabling, Other)
  Sender: FDA-Public Use
  Company Number: GB-ACCORD-024451

PATIENT
  Sex: Male

DRUGS (1)
  1. AMITRIPTYLINE [Suspect]
     Indication: PRODUCT USED FOR UNKNOWN INDICATION

REACTIONS (3)
  - Myocardial infarction [Unknown]
  - Somnolence [Not Recovered/Not Resolved]
  - Visual impairment [Not Recovered/Not Resolved]
